FAERS Safety Report 9501278 (Version 3)
Quarter: 2013Q4

REPORT INFORMATION
  Report Type: Spontaneous
  Country: US (occurrence: None)
  Receive Date: 20130107
  Receipt Date: 20131226
  Transmission Date: 20140711
  Serious: Yes (Other)
  Sender: FDA-Public Use
  Company Number: PHEH2012US021475

PATIENT
  Age: 42 Year
  Sex: Male

DRUGS (5)
  1. GILENYA (FINGOLIMOD) CAPSULE, 0.5MG [Suspect]
     Indication: MULTIPLE SCLEROSIS
     Route: 048
     Dates: start: 201104
  2. AMPYRA [Concomitant]
  3. SYNTHROID (LEVOTHYROXINE SODIUM) [Concomitant]
  4. TERAZOSIN [Concomitant]
  5. CELEXA [Concomitant]

REACTIONS (6)
  - Arthralgia [None]
  - Cold sweat [None]
  - Gastrooesophageal reflux disease [None]
  - Migraine [None]
  - Dizziness [None]
  - Visual impairment [None]
